FAERS Safety Report 9880601 (Version 1)
Quarter: 2014Q1

REPORT INFORMATION
  Report Type: Spontaneous
  Country: GR (occurrence: None)
  Receive Date: 20140205
  Receipt Date: 20140205
  Transmission Date: 20141002
  Serious: Yes (Hospitalization)
  Sender: FDA-Public Use
  Company Number: 7266559

PATIENT
  Age: 58 Year
  Sex: Female

DRUGS (2)
  1. LEVOTHYROXINE SODIUM [Suspect]
     Indication: HYPOTHYROIDISM
  2. BISOPROLOL FUMARATE [Suspect]
     Indication: HYPOTHYROIDISM

REACTIONS (4)
  - Respiratory tract infection [None]
  - Renal failure acute [None]
  - Pleural effusion [None]
  - Hepatotoxicity [None]
